FAERS Safety Report 9642512 (Version 1)
Quarter: 2013Q4

REPORT INFORMATION
  Report Type: Spontaneous
  Country: IT (occurrence: IT)
  Receive Date: 20131024
  Receipt Date: 20131024
  Transmission Date: 20140711
  Serious: Yes (Hospitalization)
  Sender: FDA-Public Use
  Company Number: IT-ACCORD-020022

PATIENT
  Age: 74 Year
  Sex: Male

DRUGS (3)
  1. IRINOTECAN HYDROCHLORIDE [Suspect]
     Indication: METASTATIC NEOPLASM
     Route: 042
     Dates: start: 20130826, end: 20130827
  2. FLUOROURACIL [Suspect]
     Indication: METASTATIC NEOPLASM
     Route: 042
     Dates: start: 20130827, end: 20130829
  3. AVASTIN [Suspect]
     Indication: METASTATIC NEOPLASM
     Route: 042
     Dates: start: 20130826, end: 20130827

REACTIONS (1)
  - Deep vein thrombosis [Recovering/Resolving]
